FAERS Safety Report 6372517-4 (Version None)
Quarter: 2009Q3

REPORT INFORMATION
  Report Type: 
  Country: None (occurrence: None)
  Receive Date: 20090924
  Receipt Date: 20080923
  Transmission Date: 20100115
  Serious: No
  Sender: FDA-Public Use
  Company Number: US-ASTRAZENECA-2008UW19945

PATIENT
  Age: 54 Year
  Sex: Female

DRUGS (1)
  1. SEROQUEL [Suspect]
     Route: 048

REACTIONS (5)
  - DRY MOUTH [None]
  - DYSARTHRIA [None]
  - SENSATION OF HEAVINESS [None]
  - SWOLLEN TONGUE [None]
  - TACHYPHRENIA [None]
